FAERS Safety Report 14524979 (Version 2)
Quarter: 2018Q1

REPORT INFORMATION
  Report Type: Report from Study
  Country: US (occurrence: US)
  Receive Date: 20180213
  Receipt Date: 20180226
  Transmission Date: 20180509
  Serious: Yes (Other)
  Sender: FDA-Public Use
  Company Number: US-TESARO, INC.-US-2017TSO01690

PATIENT

DRUGS (2)
  1. ZEJULA [Suspect]
     Active Substance: NIRAPARIB
     Indication: MALIGNANT PERITONEAL NEOPLASM
     Dosage: 300 MG, QD
     Route: 048
     Dates: start: 20170614, end: 20170630
  2. ZEJULA [Suspect]
     Active Substance: NIRAPARIB
     Dosage: 100 MG, QD
     Route: 048

REACTIONS (13)
  - Dry mouth [Not Recovered/Not Resolved]
  - Nausea [Unknown]
  - Presbyopia [Unknown]
  - Abdominal pain [Unknown]
  - Gastrooesophageal reflux disease [Unknown]
  - Cataract [Not Recovered/Not Resolved]
  - Retching [Unknown]
  - Tooth abscess [Not Recovered/Not Resolved]
  - Product label issue [Unknown]
  - Throat irritation [Unknown]
  - Oesophagitis [Unknown]
  - Weight decreased [Not Recovered/Not Resolved]
  - Vaginal haemorrhage [Not Recovered/Not Resolved]

NARRATIVE: CASE EVENT DATE: 201706
